FAERS Safety Report 4744349-1 (Version None)
Quarter: 2005Q3

REPORT INFORMATION
  Report Type: 
  Country: None (occurrence: None)
  Receive Date: 20050811
  Receipt Date: 20050811
  Transmission Date: 20060218
  Serious: Yes (Hospitalization)
  Sender: FDA-Public Use
  Company Number: None

PATIENT
  Age: 76 Year
  Sex: Male
  Weight: 98.5 kg

DRUGS (8)
  1. PHENYTOIN [Suspect]
     Indication: CEREBROVASCULAR ACCIDENT
     Dosage: 400MG   ONCE DAILY   ORAL
     Route: 048
     Dates: start: 20050110, end: 20050410
  2. PHENYTOIN [Suspect]
     Indication: CONVULSION
     Dosage: 400MG   ONCE DAILY   ORAL
     Route: 048
     Dates: start: 20050110, end: 20050410
  3. TOPROL-XL [Concomitant]
  4. IMDUR [Concomitant]
  5. ZESTRL [Concomitant]
  6. ZOCOR [Concomitant]
  7. FOLIC ACID [Concomitant]
  8. ASPIRIN [Concomitant]

REACTIONS (2)
  - NEUTROPENIA [None]
  - WHITE BLOOD CELL COUNT DECREASED [None]
